FAERS Safety Report 7978153-8 (Version None)
Quarter: 2011Q4

REPORT INFORMATION
  Report Type: 
  Country: None (occurrence: None)
  Receive Date: 20111214
  Receipt Date: 20111205
  Transmission Date: 20120403
  Serious: Yes (Other)
  Sender: FDA-Public Use
  Company Number: US-CELGENEUS-163-21880-11071099

PATIENT
  Sex: Male

DRUGS (12)
  1. SPIRONOLACTONE [Concomitant]
     Indication: HYPERTENSION
     Dosage: 20 MILLIGRAM
     Route: 065
  2. LOVAZA [Concomitant]
     Route: 065
  3. AMBIEN [Concomitant]
     Indication: SLEEP DISORDER
     Route: 048
  4. ALDACTONE [Concomitant]
     Route: 065
  5. REVLIMID [Suspect]
     Indication: MULTIPLE MYELOMA
     Dosage: 10 MILLIGRAM
     Route: 048
     Dates: start: 20110117
  6. NORVASC [Concomitant]
     Indication: HYPERTENSION
     Dosage: 5 MILLIGRAM
     Route: 048
  7. REVLIMID [Suspect]
     Dosage: 20 MILLIGRAM
     Route: 048
     Dates: start: 20110711, end: 20110717
  8. REVLIMID [Suspect]
     Dosage: 25 MILLIGRAM
     Route: 048
     Dates: start: 20110718
  9. REVLIMID [Suspect]
     Dosage: 10 MILLIGRAM
     Route: 048
     Dates: start: 20090427, end: 20090629
  10. NEURONTIN [Suspect]
     Route: 065
  11. ASPIRIN [Concomitant]
     Dosage: 81 MILLIGRAM
     Route: 048
  12. SPAN [Concomitant]
     Route: 065

REACTIONS (3)
  - MULTIPLE MYELOMA [None]
  - FATIGUE [None]
  - BLOOD CREATINE PHOSPHOKINASE INCREASED [None]
